FAERS Safety Report 7285153 (Version 3)
Quarter: 2013Q4

REPORT INFORMATION
  Report Type: Spontaneous
  Country: US (occurrence: US)
  Receive Date: 20100219
  Receipt Date: 20131231
  Transmission Date: 20140711
  Serious: Yes (Hospitalization, Other)
  Sender: FDA-Public Use
  Company Number: US-BAYER-201014263NA

PATIENT
  Age: 28 Year
  Sex: Female
  Weight: 81 kg

DRUGS (10)
  1. YAZ [Suspect]
     Indication: ORAL CONTRACEPTION
     Route: 048
     Dates: start: 200704, end: 200811
  2. YAZ [Suspect]
     Indication: PREMENSTRUAL SYNDROME
  3. YAZ [Suspect]
     Indication: PREMENSTRUAL DYSPHORIC DISORDER
  4. XANAX [Concomitant]
     Indication: ANXIETY
     Route: 065
     Dates: start: 2007
  5. LEXAPRO [Concomitant]
     Indication: ANXIETY
     Route: 065
     Dates: start: 2007, end: 2008
  6. VITAMINS [Concomitant]
     Indication: PROPHYLAXIS
     Route: 065
     Dates: start: 2004
  7. ZOLOFT [Concomitant]
     Indication: POSTPARTUM DEPRESSION
     Route: 065
     Dates: start: 200704
  8. LORTAB [Concomitant]
     Indication: POSTOPERATIVE CARE
     Route: 065
  9. KEFLEX [Concomitant]
     Indication: POSTOPERATIVE CARE
     Route: 065
  10. QUESTRAN [Concomitant]
     Indication: PRODUCT USED FOR UNKNOWN INDICATION
     Route: 065

REACTIONS (13)
  - Cholecystitis [Recovered/Resolved]
  - Cholelithiasis [None]
  - Gallbladder disorder [None]
  - Postpartum depression [None]
  - Back pain [Recovered/Resolved]
  - Fatigue [Recovered/Resolved]
  - Constipation [Recovered/Resolved]
  - Diarrhoea [Not Recovered/Not Resolved]
  - Abdominal pain upper [Recovered/Resolved]
  - Nausea [Recovered/Resolved]
  - Abdominal pain [None]
  - Diarrhoea [None]
  - Scar [None]
